FAERS Safety Report 9373722 (Version 1)
Quarter: 2013Q2

REPORT INFORMATION
  Report Type: Spontaneous
  Country: ES (occurrence: ES)
  Receive Date: 20130627
  Receipt Date: 20130627
  Transmission Date: 20140414
  Serious: Yes (Other)
  Sender: FDA-Public Use
  Company Number: ES-BAXTER-2013BAX023631

PATIENT
  Age: 29 Year
  Sex: Male

DRUGS (10)
  1. EXTRANEAL [Suspect]
     Indication: RENAL FAILURE CHRONIC
     Route: 033
     Dates: start: 201301
  2. NUTRINEAL PD4 1,1% AMINOACIDOS [Suspect]
     Indication: RENAL FAILURE CHRONIC
     Route: 033
     Dates: start: 201301, end: 20130118
  3. PHYSIONEAL 35 GLUCOSA 2,27% P/V/22,7 MG/ML. CLEAR-FLEX SOLUCI?N PARA D [Suspect]
     Indication: RENAL FAILURE CHRONIC
     Route: 033
     Dates: start: 201301
  4. PHYSIONEAL 35 GLUCOSA 2,27% P/V/22,7 MG/ML. CLEAR-FLEX SOLUCI?N PARA D [Suspect]
     Route: 033
     Dates: start: 201301
  5. PHYSIONEAL 35 GLUCOSA 2,27% P/V/22,7 MG/ML. CLEAR-FLEX SOLUCI?N PARA D [Suspect]
     Route: 033
     Dates: start: 201301
  6. PHYSIONEAL 35 GLUCOSE 1,36 % W/V 13,6 MG/ML CLEAR-FLEX PERITONEALDIALY [Suspect]
     Route: 033
     Dates: start: 201301
  7. PHYSIONEAL 35 GLUCOSA 1,36% P/V/13,6 MG/ML. SOL.DIAL.PER. [Suspect]
     Indication: RENAL FAILURE CHRONIC
     Route: 033
     Dates: start: 201301
  8. PHYSIONEAL 35 GLUCOSA 1,36% P/V/13,6 MG/ML. SOL.DIAL.PER. [Suspect]
     Route: 033
     Dates: start: 201301
  9. PHYSIONEAL 35 GLUCOSA 1,36% P/V/13,6 MG/ML. CLEAR-FLEX SOLUCI?N PARA D [Suspect]
     Indication: RENAL FAILURE CHRONIC
     Route: 033
     Dates: start: 201301
  10. PHYSIONEAL 35 GLUCOSA 1,36% P/V/13,6 MG/ML. CLEAR-FLEX SOLUCI?N PARA D [Suspect]
     Route: 033
     Dates: start: 201301

REACTIONS (5)
  - Peritoneal cloudy effluent [Recovering/Resolving]
  - Monocytosis [Recovering/Resolving]
  - General physical health deterioration [Unknown]
  - Pyrexia [Unknown]
  - Abdominal pain [Unknown]
